FAERS Safety Report 6034081-9 (Version None)
Quarter: 2009Q1

REPORT INFORMATION
  Report Type: 
  Country: None (occurrence: None)
  Receive Date: 20090108
  Receipt Date: 20090108
  Transmission Date: 20090719
  Serious: Yes (Hospitalization)
  Sender: FDA-Public Use
  Company Number: None

PATIENT
  Age: 92 Year
  Sex: Male
  Weight: 82.9 kg

DRUGS (1)
  1. BACLOFEN [Suspect]
     Indication: HYPOTONIA
     Dosage: 10 MG TID PO
     Route: 048
     Dates: start: 20041025, end: 20081221

REACTIONS (2)
  - FATIGUE [None]
  - SEDATION [None]
